FAERS Safety Report 14638252 (Version 1)
Quarter: 2018Q1

REPORT INFORMATION
  Report Type: Report from Study
  Country: JP (occurrence: JP)
  Receive Date: 20180314
  Receipt Date: 20180314
  Transmission Date: 20180509
  Serious: Yes (Hospitalization, Other)
  Sender: FDA-Public Use
  Company Number: JP-GILEAD-2018-0318646

PATIENT
  Age: 68 Year
  Sex: Female

DRUGS (14)
  1. AMBRISENTAN [Suspect]
     Active Substance: AMBRISENTAN
     Dosage: 2.5 MG, BID
     Route: 048
     Dates: start: 20170926
  2. BERASUS [Concomitant]
     Active Substance: BERAPROST SODIUM
     Indication: PULMONARY ARTERIAL HYPERTENSION
     Dosage: UNK
  3. SUCRALFATE. [Concomitant]
     Active Substance: SUCRALFATE
     Dosage: UNK
  4. SALAGEN [Concomitant]
     Active Substance: PILOCARPINE HYDROCHLORIDE
     Dosage: UNK
  5. SPIRONOLACTONE. [Concomitant]
     Active Substance: SPIRONOLACTONE
     Dosage: UNK
     Dates: start: 20161217
  6. ANPLAG [Concomitant]
     Active Substance: SARPOGRELATE
     Dosage: UNK
  7. ADCIRCA [Suspect]
     Active Substance: TADALAFIL
     Indication: PULMONARY ARTERIAL HYPERTENSION
     Dosage: UNK
     Route: 048
     Dates: start: 20161215, end: 20170925
  8. SAMSCA [Concomitant]
     Active Substance: TOLVAPTAN
     Dosage: UNK
     Dates: start: 20170124
  9. K-SUPPLY [Concomitant]
     Active Substance: POTASSIUM CHLORIDE
     Dosage: UNK
     Dates: start: 20161221
  10. AMBRISENTAN [Suspect]
     Active Substance: AMBRISENTAN
     Indication: PULMONARY ARTERIAL HYPERTENSION
     Dosage: 2.5 MG, BID
     Route: 048
     Dates: start: 20161212, end: 20170727
  11. DIART [Concomitant]
     Active Substance: AZOSEMIDE
     Dosage: UNK
  12. SUCRALFATE. [Concomitant]
     Active Substance: SUCRALFATE
     Dosage: UNK
  13. GASMOTIN [Concomitant]
     Active Substance: MOSAPRIDE CITRATE
     Dosage: UNK
  14. BERASUS LA [Concomitant]
     Indication: PULMONARY ARTERIAL HYPERTENSION
     Dosage: UNK

REACTIONS (5)
  - Hepatic function abnormal [Recovered/Resolved]
  - Off label use [Recovered/Resolved]
  - Cardiac failure [Recovering/Resolving]
  - Enterocolitis [Recovering/Resolving]
  - Parathyroid tumour benign [Recovered/Resolved]

NARRATIVE: CASE EVENT DATE: 20161212
